FAERS Safety Report 15597162 (Version 1)
Quarter: 2018Q4

REPORT INFORMATION
  Report Type: Spontaneous
  Country: US (occurrence: US)
  Receive Date: 20181108
  Receipt Date: 20181108
  Transmission Date: 20190205
  Serious: No
  Sender: FDA-Public Use
  Company Number: US-APOTEX-2018AP022624

PATIENT
  Age: 75 Year
  Sex: Male

DRUGS (1)
  1. NALTREXONE [Suspect]
     Active Substance: NALTREXONE
     Indication: GUTTATE PSORIASIS
     Dosage: LOW DOSE
     Route: 048

REACTIONS (1)
  - Dry skin [Unknown]
